FAERS Safety Report 18205028 (Version 1)
Quarter: 2020Q3

REPORT INFORMATION
  Report Type: Report from Study
  Country: US (occurrence: US)
  Receive Date: 20200828
  Receipt Date: 20200828
  Transmission Date: 20201103
  Serious: Yes (Other)
  Sender: FDA-Public Use
  Company Number: US-HORIZON-TEP-1423-2020

PATIENT
  Age: 57 Year
  Sex: Female
  Weight: 54.54 kg

DRUGS (3)
  1. ACYCLOVIR. [Concomitant]
     Active Substance: ACYCLOVIR
  2. SYNTHROID [Concomitant]
     Active Substance: LEVOTHYROXINE SODIUM
  3. TEPEZZA [Suspect]
     Active Substance: TEPROTUMUMAB-TRBW
     Indication: ENDOCRINE OPHTHALMOPATHY
     Dosage: 20MG/KG IV EVERY 3 WEEKS
     Route: 042
     Dates: start: 20200624

REACTIONS (8)
  - Condition aggravated [Recovered/Resolved]
  - Haematochezia [Unknown]
  - Diarrhoea [Not Recovered/Not Resolved]
  - Eye disorder [Recovered/Resolved]
  - Cough [Not Recovered/Not Resolved]
  - Thyroid hormones decreased [Unknown]
  - Weight decreased [Unknown]
  - Vomiting [Unknown]
